FAERS Safety Report 7395129-2 (Version None)
Quarter: 2011Q2

REPORT INFORMATION
  Report Type: 
  Country: None (occurrence: None)
  Receive Date: 20110405
  Receipt Date: 20110322
  Transmission Date: 20111010
  Serious: Yes (Other)
  Sender: FDA-Public Use
  Company Number: PHHY2011VE24457

PATIENT
  Sex: Male

DRUGS (3)
  1. GLEEVEC [Suspect]
     Dosage: 400 MG, QD
     Route: 048
     Dates: start: 20050101
  2. GLEEVEC [Suspect]
     Dosage: 600 MG, QD
     Route: 048
     Dates: start: 20090101, end: 20110101
  3. GLEEVEC [Suspect]
     Indication: CHRONIC MYELOID LEUKAEMIA
     Dosage: 300 MG, QD
     Route: 048
     Dates: start: 20030601

REACTIONS (13)
  - HYPOCALCAEMIA [None]
  - EYELID OEDEMA [None]
  - GASTROOESOPHAGEAL REFLUX DISEASE [None]
  - LYMPHOCYTE COUNT DECREASED [None]
  - ALOPECIA [None]
  - DRY SKIN [None]
  - HAEMOGLOBIN DECREASED [None]
  - ANAEMIA MACROCYTIC [None]
  - NAUSEA [None]
  - DIARRHOEA [None]
  - HYPOXIA [None]
  - PRURITUS [None]
  - OEDEMA PERIPHERAL [None]
